FAERS Safety Report 9475659 (Version 3)
Quarter: 2013Q4

REPORT INFORMATION
  Report Type: Spontaneous
  Country: AU (occurrence: AU)
  Receive Date: 20130826
  Receipt Date: 20131224
  Transmission Date: 20140711
  Serious: Yes (Other)
  Sender: FDA-Public Use
  Company Number: PHHY2013AU091358

PATIENT
  Sex: Male

DRUGS (3)
  1. GILENYA [Suspect]
     Indication: RELAPSING-REMITTING MULTIPLE SCLEROSIS
     Dosage: 0.5 MG, UNK
     Route: 048
     Dates: start: 201111
  2. TYSABRI [Concomitant]
     Indication: MULTIPLE SCLEROSIS
     Dosage: 300 MG/MONTH
     Route: 042
     Dates: start: 201012, end: 201212
  3. VITAMIN D3 [Concomitant]

REACTIONS (3)
  - Leiomyosarcoma [Not Recovered/Not Resolved]
  - Basal cell carcinoma [Unknown]
  - Actinomycosis [Unknown]
